FAERS Safety Report 21202595 (Version 1)
Quarter: 2022Q3

REPORT INFORMATION
  Report Type: Spontaneous
  Country: US (occurrence: None)
  Receive Date: 20220811
  Receipt Date: 20220811
  Transmission Date: 20221027
  Serious: Yes (Disabling)
  Sender: FDA-Public Use
  Company Number: None

PATIENT
  Age: 45 Year
  Sex: Male
  Weight: 90 kg

DRUGS (1)
  1. ENTYVIO [Suspect]
     Active Substance: VEDOLIZUMAB
     Dosage: OTHER ROUTE : EVERY 8 WEEKS;?
     Route: 050
     Dates: start: 20200513, end: 20220808

REACTIONS (6)
  - Throat irritation [None]
  - Rash [None]
  - Injection site pain [None]
  - Hypoaesthesia [None]
  - Paraesthesia [None]
  - Migraine [None]

NARRATIVE: CASE EVENT DATE: 20200513
